FAERS Safety Report 6483251-4 (Version None)
Quarter: 2009Q4

REPORT INFORMATION
  Report Type: 
  Country: None (occurrence: None)
  Receive Date: 20091209
  Receipt Date: 20091201
  Transmission Date: 20100525
  Serious: Yes (Disabling)
  Sender: FDA-Public Use
  Company Number: CO-ELI_LILLY_AND_COMPANY-CO200912001063

PATIENT
  Age: 77 Year
  Sex: Male

DRUGS (10)
  1. FORTEO [Suspect]
     Indication: OSTEOPOROSIS
     Dosage: 20 UG, DAILY (1/D)
     Route: 058
     Dates: start: 20080807
  2. DIAMICRON MR [Concomitant]
     Route: 048
  3. CALCIUM W/VITAMIN D NOS [Concomitant]
  4. LOVASTATIN [Concomitant]
  5. ASPIRIN [Concomitant]
  6. METFORMIN [Concomitant]
  7. FLUOXETINE [Concomitant]
  8. PREDNISOLONE [Concomitant]
  9. FLUDROCORTISONE [Concomitant]
  10. VITAMIN B-12 [Concomitant]

REACTIONS (5)
  - ABASIA [None]
  - ARTHRALGIA [None]
  - GENERAL PHYSICAL HEALTH DETERIORATION [None]
  - POSTURE ABNORMAL [None]
  - WEIGHT DECREASED [None]
